FAERS Safety Report 7751084-4 (Version None)
Quarter: 2011Q3

REPORT INFORMATION
  Report Type: 
  Country: None (occurrence: None)
  Receive Date: 20110914
  Receipt Date: 20110902
  Transmission Date: 20111222
  Serious: Yes (Other)
  Sender: FDA-Public Use
  Company Number: US-MYLANLABS-2011S1018744

PATIENT
  Sex: Female

DRUGS (2)
  1. EFFEXOR XR [Suspect]
     Indication: HOT FLUSH
  2. VENLAFAXINE HYDROCHLORIDE [Suspect]

REACTIONS (4)
  - INSOMNIA [None]
  - BLADDER CANCER [None]
  - HOT FLUSH [None]
  - DRUG INEFFECTIVE FOR UNAPPROVED INDICATION [None]
